FAERS Safety Report 7819572-X (Version None)
Quarter: 2011Q4

REPORT INFORMATION
  Report Type: 
  Country: None (occurrence: None)
  Receive Date: 20111013
  Receipt Date: 20110927
  Transmission Date: 20120403
  Serious: Yes (Life-Threatening, Hospitalization, Other)
  Sender: FDA-Public Use
  Company Number: CRC-11-242

PATIENT
  Age: 22 Year
  Sex: Female

DRUGS (1)
  1. AMLODIPINE [Suspect]
     Indication: SELF-MEDICATION
     Dosage: 280 MG ONCE; ORAL
     Route: 048

REACTIONS (6)
  - ELECTROCARDIOGRAM T WAVE INVERSION [None]
  - DYSPNOEA [None]
  - INCORRECT DOSE ADMINISTERED [None]
  - HYPOTENSION [None]
  - CARDIAC FAILURE CONGESTIVE [None]
  - HYPOCALCAEMIA [None]
